FAERS Safety Report 6102948-9 (Version None)
Quarter: 2009Q1

REPORT INFORMATION
  Report Type: 
  Country: None (occurrence: None)
  Receive Date: 20090305
  Receipt Date: 20090218
  Transmission Date: 20090719
  Serious: Yes (Other)
  Sender: FDA-Public Use
  Company Number: PHHY2009ZA06026

PATIENT
  Sex: Male

DRUGS (2)
  1. DIOVAN HCT [Suspect]
     Indication: BLOOD PRESSURE
     Dosage: 160 MG, QD
  2. DIOVAN HCT [Suspect]
     Dosage: 160 MG, BID

REACTIONS (5)
  - ERYTHEMA [None]
  - HEART RATE IRREGULAR [None]
  - NAUSEA [None]
  - PALPITATIONS [None]
  - VOMITING [None]
